FAERS Safety Report 10437046 (Version 1)
Quarter: 2014Q3

REPORT INFORMATION
  Report Type: Spontaneous
  Country: US (occurrence: US)
  Receive Date: 20140908
  Receipt Date: 20140908
  Transmission Date: 20150326
  Serious: No
  Sender: FDA-Public Use
  Company Number: US-BRISTOL-MYERS SQUIBB COMPANY-19586148

PATIENT
  Age: 11 Year
  Sex: Male
  Weight: 58.96 kg

DRUGS (1)
  1. ABILIFY [Suspect]
     Active Substance: ARIPIPRAZOLE
     Indication: ATTENTION DEFICIT/HYPERACTIVITY DISORDER
     Dosage: 1DF:HALF TABLET
     Dates: start: 2013

REACTIONS (5)
  - Somnolence [Unknown]
  - Vomiting [Unknown]
  - Migraine [Unknown]
  - Wrong technique in drug usage process [Unknown]
  - Nausea [Unknown]
